FAERS Safety Report 22053011 (Version 1)
Quarter: 2023Q1

REPORT INFORMATION
  Report Type: Spontaneous
  Country: US (occurrence: US)
  Receive Date: 20230302
  Receipt Date: 20230302
  Transmission Date: 20230418
  Serious: No
  Sender: FDA-Public Use
  Company Number: US-ELI_LILLY_AND_COMPANY-US202206000115

PATIENT
  Sex: Male

DRUGS (3)
  1. ADCIRCA [Suspect]
     Active Substance: TADALAFIL
     Indication: Pulmonary arterial hypertension
     Dosage: 40 MG, DAILY
     Route: 048
     Dates: start: 20220415, end: 20230212
  2. TYVASO [Suspect]
     Active Substance: TREPROSTINIL
     Indication: Pulmonary arterial hypertension
     Dosage: UNK UNK, OTHER (9 BREATHS, FOUR TIMES DAILY)
     Route: 055
     Dates: start: 20220415
  3. TYVASO [Suspect]
     Active Substance: TREPROSTINIL
     Dosage: 6 BREATHS, TID
     Route: 055

REACTIONS (1)
  - Asthma [Unknown]
